FAERS Safety Report 24593693 (Version 1)
Quarter: 2024Q4

REPORT INFORMATION
  Report Type: Spontaneous
  Country: FR (occurrence: FR)
  Receive Date: 20241108
  Receipt Date: 20241108
  Transmission Date: 20250115
  Serious: Yes (Other)
  Sender: MYLAN
  Company Number: FR-MYLANLABS-2024M1100009

PATIENT
  Age: 76 Year
  Sex: Female

DRUGS (1)
  1. FUROSEMIDE [Suspect]
     Active Substance: FUROSEMIDE
     Indication: Arrhythmia
     Dosage: 40 MILLIGRAM, AM (1 TABLET PER DAY IN THE MORNING)
     Route: 065
     Dates: start: 202410, end: 20241030

REACTIONS (4)
  - Urinary retention [Unknown]
  - Pneumonia [Unknown]
  - Cough [Unknown]
  - Off label use [Recovered/Resolved]

NARRATIVE: CASE EVENT DATE: 20241001
